FAERS Safety Report 6566784-1 (Version None)
Quarter: 2010Q1

REPORT INFORMATION
  Report Type: 
  Country: None (occurrence: None)
  Receive Date: 20100202
  Receipt Date: 20100122
  Transmission Date: 20100710
  Serious: Yes (Hospitalization)
  Sender: FDA-Public Use
  Company Number: IT-WATSON-2010-00850

PATIENT
  Age: 64 Year
  Sex: Male

DRUGS (1)
  1. CHLOROQUINE (WATSON LABORATORIES) [Suspect]
     Indication: MALARIA
     Dosage: 7.5 G, TOTAL
     Route: 048

REACTIONS (1)
  - CARDIAC FAILURE [None]
